FAERS Safety Report 8905207 (Version 1)
Quarter: 2012Q4

REPORT INFORMATION
  Report Type: 
  Country: US (occurrence: US)
  Receive Date: 20121113
  Receipt Date: 20121113
  Transmission Date: 20130627
  Serious: No
  Sender: FDA-Public Use
  Company Number: US-009507513-1210USA014665

PATIENT
  Age: 32 Year
  Sex: Female

DRUGS (1)
  1. NUVARING [Suspect]
     Indication: CONTRACEPTION
     Dosage: 3 weeks in, 1 week out
     Route: 067
     Dates: start: 201208, end: 20121030

REACTIONS (2)
  - Device expulsion [Unknown]
  - Vaginal haemorrhage [Unknown]
